FAERS Safety Report 25259638 (Version 1)
Quarter: 2025Q2

REPORT INFORMATION
  Report Type: Spontaneous
  Country: US (occurrence: US)
  Receive Date: 20250501
  Receipt Date: 20250501
  Transmission Date: 20250716
  Serious: Yes (Other)
  Sender: RANBAXY
  Company Number: US-SUN PHARMACEUTICAL INDUSTRIES LTD-2025R1-505803

PATIENT
  Sex: Male
  Weight: 200 kg

DRUGS (7)
  1. RANITIDINE [Suspect]
     Active Substance: RANITIDINE
     Indication: Abdominal pain upper
     Dosage: 150 MILLIGRAM, DAILY
     Route: 048
     Dates: start: 198807
  2. DICLOFENAC SODIUM [Concomitant]
     Active Substance: DICLOFENAC SODIUM
     Indication: Product used for unknown indication
     Route: 065
  3. ROSUVASTATIN CALCIUM [Concomitant]
     Active Substance: ROSUVASTATIN CALCIUM
     Indication: Product used for unknown indication
     Route: 048
  4. venlafaxine HCI [Concomitant]
     Indication: Product used for unknown indication
     Dosage: 150 MILLIGRAM, DAILY
     Route: 048
  5. CYCLOBENZAPRINE HYDROCHLORIDE [Concomitant]
     Active Substance: CYCLOBENZAPRINE HYDROCHLORIDE
     Indication: Product used for unknown indication
     Dosage: 10 MILLIGRAM, QD
     Route: 048
  6. MELOXICAM [Concomitant]
     Active Substance: MELOXICAM
     Indication: Product used for unknown indication
     Dosage: 15 MILLIGRAM, QD
     Route: 048
  7. venlafaxine HCI [Concomitant]
     Indication: Product used for unknown indication
     Dosage: 150 MILLIGRAM, QD
     Route: 048

REACTIONS (1)
  - Prostate cancer [Unknown]
